FAERS Safety Report 22157313 (Version 1)
Quarter: 2023Q1

REPORT INFORMATION
  Report Type: Spontaneous
  Country: AU (occurrence: AU)
  Receive Date: 20230330
  Receipt Date: 20230330
  Transmission Date: 20230418
  Serious: Yes (Life-Threatening, Hospitalization, Other)
  Sender: FDA-Public Use
  Company Number: AU-BRISTOL-MYERS SQUIBB COMPANY-2023-045034

PATIENT
  Age: 70 Year
  Sex: Female

DRUGS (2)
  1. APIXABAN [Suspect]
     Active Substance: APIXABAN
     Indication: Pulmonary embolism
  2. ENOXAPARIN [Suspect]
     Active Substance: ENOXAPARIN
     Indication: Pulmonary embolism

REACTIONS (2)
  - Pericardial haemorrhage [Unknown]
  - Cardiac tamponade [Unknown]
